FAERS Safety Report 12668499 (Version 1)
Quarter: 2016Q3

REPORT INFORMATION
  Report Type: Spontaneous
  Country: HU (occurrence: HU)
  Receive Date: 20160819
  Receipt Date: 20160819
  Transmission Date: 20161109
  Serious: Yes (Hospitalization, Other)
  Sender: FDA-Public Use
  Company Number: HU-WATSON-2016-16968

PATIENT
  Age: 33 Year
  Sex: Female

DRUGS (1)
  1. DISULFIRAM (UNKNOWN) [Suspect]
     Active Substance: DISULFIRAM
     Indication: SUICIDE ATTEMPT
     Dosage: 20 G, TOTAL ( APPROXIMATELY)
     Route: 065

REACTIONS (3)
  - Catatonia [Recovered/Resolved]
  - Suicide attempt [Recovered/Resolved]
  - Overdose [Recovered/Resolved]
